FAERS Safety Report 8766541 (Version 1)
Quarter: 2012Q4

REPORT INFORMATION
  Report Type: 
  Country: US (occurrence: US)
  Receive Date: 20120904
  Receipt Date: 20120904
  Transmission Date: 20130627
  Serious: Yes (Other)
  Sender: FDA-Public Use
  Company Number: US-ASTRAZENECA-2012SE64531

PATIENT
  Age: 78 Year
  Sex: Male
  Weight: 77.1 kg

DRUGS (15)
  1. ATENOLOL [Suspect]
     Route: 065
  2. PRILOSEC [Suspect]
     Route: 048
  3. CRESTOR [Suspect]
     Route: 048
  4. BRILINTA [Suspect]
     Indication: STENT PLACEMENT
     Route: 048
     Dates: start: 201204, end: 201206
  5. BRILINTA [Suspect]
     Indication: CARDIAC DISORDER
     Route: 048
     Dates: start: 201204, end: 201206
  6. BRILINTA [Suspect]
     Indication: ANTICOAGULANT THERAPY
     Route: 048
     Dates: start: 201204, end: 201206
  7. BRILINTA [Suspect]
     Indication: STENT PLACEMENT
     Route: 048
     Dates: start: 20120802
  8. BRILINTA [Suspect]
     Indication: CARDIAC DISORDER
     Route: 048
     Dates: start: 20120802
  9. BRILINTA [Suspect]
     Indication: ANTICOAGULANT THERAPY
     Route: 048
     Dates: start: 20120802
  10. SYNTHROID [Concomitant]
  11. SINEMET [Concomitant]
     Indication: PARKINSON^S DISEASE
     Dosage: 25/100 MG,QID
  12. AZILECT [Concomitant]
     Indication: PARKINSON^S DISEASE
  13. FAMOTIDINE [Concomitant]
  14. ASPIRIN [Concomitant]
  15. LACTULOSE [Concomitant]

REACTIONS (4)
  - Anuria [Unknown]
  - Haemorrhage urinary tract [Unknown]
  - Urinary bladder haemorrhage [Unknown]
  - Drug hypersensitivity [Unknown]
